FAERS Safety Report 9778178 (Version 2)
Quarter: 2013Q4

REPORT INFORMATION
  Report Type: Report from Study
  Country: CZ (occurrence: CZ)
  Receive Date: 20131223
  Receipt Date: 20131223
  Transmission Date: 20140711
  Serious: Yes (Death)
  Sender: FDA-Public Use
  Company Number: PHHY2013CZ054302

PATIENT
  Age: 45 Year
  Sex: Female

DRUGS (2)
  1. EVEROLIMUS [Suspect]
     Indication: METASTATIC RENAL CELL CARCINOMA
     Dosage: 10 MG
     Dates: start: 20130204, end: 20130322
  2. EVEROLIMUS [Suspect]
     Dosage: 5 MG
     Dates: start: 20130323, end: 20130517

REACTIONS (5)
  - Death [Fatal]
  - Malignant neoplasm progression [Unknown]
  - Metastatic renal cell carcinoma [Unknown]
  - Hepatic function abnormal [Unknown]
  - Renal impairment [Unknown]
